FAERS Safety Report 11055170 (Version 1)
Quarter: 2015Q2

REPORT INFORMATION
  Report Type: Spontaneous
  Country: US (occurrence: US)
  Receive Date: 20150422
  Receipt Date: 20150422
  Transmission Date: 20150821
  Serious: Yes (Death, Other)
  Sender: FDA-Public Use
  Company Number: US-SA-2015SA003613

PATIENT
  Sex: Male

DRUGS (2)
  1. COUMADIN [Suspect]
     Active Substance: WARFARIN SODIUM
     Dosage: DOSE-COUMADIN QD FOR TWO DOSES OF 5 MG AND QD FOR TWO DOSES OF 6 MG.
     Route: 065
     Dates: end: 20141210
  2. ENOXAPARIN SODIUM - WINTHROP [Suspect]
     Active Substance: ENOXAPARIN SODIUM
     Indication: ATRIAL FIBRILLATION
     Route: 065
     Dates: start: 20141207, end: 20141210

REACTIONS (4)
  - Hypotension [Not Recovered/Not Resolved]
  - Retroperitoneal haemorrhage [Not Recovered/Not Resolved]
  - Death [Fatal]
  - Lethargy [Not Recovered/Not Resolved]

NARRATIVE: CASE EVENT DATE: 20141210
